FAERS Safety Report 10203723 (Version 1)
Quarter: 2014Q2

REPORT INFORMATION
  Report Type: Spontaneous
  Country: US (occurrence: None)
  Receive Date: 20140523
  Receipt Date: 20140523
  Transmission Date: 20141212
  Serious: Yes (Hospitalization)
  Sender: FDA-Public Use
  Company Number: CIO14035755

PATIENT
  Age: 60 Year
  Sex: Male

DRUGS (1)
  1. CREST PRO-HEALTH [Suspect]
     Dosage: INTRAORAL
     Route: 031

REACTIONS (2)
  - Pain [None]
  - Mental disorder [None]
